FAERS Safety Report 6644333-7 (Version None)
Quarter: 2010Q1

REPORT INFORMATION
  Report Type: 
  Country: None (occurrence: None)
  Receive Date: 20100322
  Receipt Date: 20100311
  Transmission Date: 20100710
  Serious: Yes (Other)
  Sender: FDA-Public Use
  Company Number: PHHY2010MX04081

PATIENT
  Sex: Female

DRUGS (4)
  1. DIOVAN HCT [Suspect]
     Indication: HYPERTENSION
     Dosage: 0.5 TABLET (160/25 MG) PER DAY
     Route: 048
     Dates: start: 20081201, end: 20090701
  2. DIOVAN HCT [Suspect]
     Dosage: 1 TABLET (160/25MG) DAILY ^ HALF EACH 12 HR^
     Route: 048
     Dates: start: 20090701
  3. TAFIL [Concomitant]
     Indication: NERVOUSNESS
     Dosage: UNK
     Dates: start: 19990701
  4. INSULIN [Concomitant]
     Indication: DIABETES MELLITUS
     Dosage: UNK
     Dates: start: 20040801

REACTIONS (3)
  - FALL [None]
  - JOINT DISLOCATION [None]
  - MUSCULAR WEAKNESS [None]
